FAERS Safety Report 20702074 (Version 1)
Quarter: 2022Q2

REPORT INFORMATION
  Report Type: Spontaneous
  Country: US (occurrence: None)
  Receive Date: 20220411
  Receipt Date: 20220411
  Transmission Date: 20220721
  Serious: Yes (Hospitalization)
  Sender: FDA-Public Use
  Company Number: None

PATIENT
  Age: 32 Year
  Sex: Female
  Weight: 79.6 kg

DRUGS (6)
  1. CAPECITABINE [Suspect]
     Active Substance: CAPECITABINE
     Indication: Colon cancer stage III
     Dosage: FREQUENCY : TWICE A DAY;?
     Route: 048
     Dates: start: 20220303, end: 20220317
  2. CAPECITABINE [Suspect]
     Active Substance: CAPECITABINE
     Indication: Colon cancer stage III
     Dosage: FREQUENCY : TWICE A DAY;?
     Route: 048
     Dates: start: 20220303, end: 20220317
  3. Dexamethasone 4mg tablets [Concomitant]
  4. NEXPLANON [Concomitant]
     Active Substance: ETONOGESTREL
  5. ONDANSETRON HYDROCHLORIDE [Concomitant]
     Active Substance: ONDANSETRON HYDROCHLORIDE
  6. prochlorperazine 10mg tablets [Concomitant]

REACTIONS (5)
  - Palmar-plantar erythrodysaesthesia syndrome [None]
  - Rash [None]
  - Diarrhoea [None]
  - Stoma site haemorrhage [None]
  - Dihydropyrimidine dehydrogenase deficiency [None]

NARRATIVE: CASE EVENT DATE: 20220318
